FAERS Safety Report 14719251 (Version 2)
Quarter: 2018Q2

REPORT INFORMATION
  Report Type: Spontaneous
  Country: US (occurrence: US)
  Receive Date: 20180405
  Receipt Date: 20180515
  Transmission Date: 20180711
  Serious: Yes (Hospitalization, Other)
  Sender: FDA-Public Use
  Company Number: US-ROCHE-2097899

PATIENT

DRUGS (1)
  1. OCREVUS [Suspect]
     Active Substance: OCRELIZUMAB
     Indication: PRODUCT USED FOR UNKNOWN INDICATION
     Route: 065
     Dates: start: 20180202

REACTIONS (5)
  - Urosepsis [Unknown]
  - Pneumonia [Unknown]
  - Bacterial colitis [Unknown]
  - Gastrointestinal disorder [Unknown]
  - Sepsis [Unknown]
